FAERS Safety Report 21036041 (Version 1)
Quarter: 2022Q3

REPORT INFORMATION
  Report Type: Spontaneous
  Country: US (occurrence: US)
  Receive Date: 20220701
  Receipt Date: 20220701
  Transmission Date: 20221027
  Serious: No
  Sender: FDA-Public Use
  Company Number: US-KRAMERLABS-2022-US-003684

PATIENT
  Age: 86 Year
  Sex: Male

DRUGS (2)
  1. NIZORAL A-D [Suspect]
     Active Substance: KETOCONAZOLE
     Indication: Skin exfoliation
     Dosage: USED ONE TIME IN EVERY DAY
     Route: 061
     Dates: start: 20220212
  2. VITAMIN B [Concomitant]
     Active Substance: VITAMIN B

REACTIONS (3)
  - Intentional product misuse [Unknown]
  - Inappropriate schedule of product administration [Unknown]
  - Somnolence [Unknown]

NARRATIVE: CASE EVENT DATE: 20220212
